APPROVED DRUG PRODUCT: PLIAGLIS
Active Ingredient: LIDOCAINE; TETRACAINE
Strength: 7%;7%
Dosage Form/Route: CREAM;TOPICAL
Application: N021717 | Product #001
Applicant: CRESCITA THERAPEUTICS INC
Approved: Jun 29, 2006 | RLD: Yes | RS: Yes | Type: RX

PATENTS:
Patent 10603293 | Expires: Jan 14, 2031
Patent 10751305 | Expires: Jan 14, 2031
Patent 10350180 | Expires: Jan 14, 2031